FAERS Safety Report 7934193-6 (Version None)
Quarter: 2011Q4

REPORT INFORMATION
  Report Type: 
  Country: None (occurrence: None)
  Receive Date: 20111122
  Receipt Date: 20111114
  Transmission Date: 20120403
  Serious: Yes (Other)
  Sender: FDA-Public Use
  Company Number: US-JNJFOC-20111105846

PATIENT
  Sex: Female
  Weight: 54.61 kg

DRUGS (5)
  1. LASIX [Concomitant]
     Route: 048
  2. NEURONTIN [Concomitant]
     Indication: DIABETIC NEUROPATHY
     Route: 048
  3. TOPAMAX [Suspect]
     Indication: MIGRAINE PROPHYLAXIS
     Route: 048
     Dates: start: 20110901
  4. AMLODIPINE [Concomitant]
     Route: 048
  5. CLONIDINE [Concomitant]
     Route: 048

REACTIONS (2)
  - BLOOD CHLORIDE DECREASED [None]
  - BLOOD SODIUM DECREASED [None]
